FAERS Safety Report 17669782 (Version 1)
Quarter: 2020Q2

REPORT INFORMATION
  Report Type: Spontaneous
  Country: US (occurrence: US)
  Receive Date: 20200414
  Receipt Date: 20200414
  Transmission Date: 20200713
  Serious: No
  Sender: FDA-Public Use
  Company Number: None

PATIENT
  Age: 77 Year
  Sex: Male
  Weight: 69.4 kg

DRUGS (1)
  1. PEGFILGRASTIM (PEGFILGRASTIM 6MG/0.6ML INJ DELIVERY KIT) [Suspect]
     Active Substance: PEGFILGRASTIM
     Indication: NEUTROPENIA
     Route: 058
     Dates: start: 20200409, end: 20200413

REACTIONS (3)
  - Pain [None]
  - Neutropenia [None]
  - Device failure [None]

NARRATIVE: CASE EVENT DATE: 20200413
